FAERS Safety Report 15930655 (Version 1)
Quarter: 2019Q1

REPORT INFORMATION
  Report Type: Spontaneous
  Country: NL (occurrence: NL)
  Receive Date: 20190207
  Receipt Date: 20190207
  Transmission Date: 20190417
  Serious: Yes (Other)
  Sender: FDA-Public Use
  Company Number: NL-TEVA-2019-NL-1008488

PATIENT

DRUGS (6)
  1. PROPRANOLOL [Suspect]
     Active Substance: PROPRANOLOL HYDROCHLORIDE
     Indication: MIGRAINE
     Route: 065
  2. BOTOX [Suspect]
     Active Substance: ONABOTULINUMTOXINA
     Indication: MIGRAINE
     Route: 065
  3. TOPIRAMAAT 25 MG [Suspect]
     Active Substance: TOPIRAMATE
     Indication: MIGRAINE
     Route: 065
  4. CANDESARTAN 16 MG [Suspect]
     Active Substance: CANDESARTAN
     Indication: MIGRAINE
     Route: 065
  5. AMITRIPTYLINE [Suspect]
     Active Substance: AMITRIPTYLINE
     Indication: MIGRAINE
     Route: 065
  6. DEPAKINE [Concomitant]
     Active Substance: VALPROATE SODIUM
     Route: 065

REACTIONS (6)
  - Depression [Unknown]
  - Muscle strain [Unknown]
  - Ocular hypertension [Unknown]
  - Dyspnoea [Unknown]
  - Memory impairment [Unknown]
  - Dizziness [Unknown]
